FAERS Safety Report 9519069 (Version 6)
Quarter: 2014Q4

REPORT INFORMATION
  Report Type: Spontaneous
  Country: IT (occurrence: None)
  Receive Date: 20130910
  Receipt Date: 20141202
  Transmission Date: 20150529
  Serious: Yes (Life-Threatening, Hospitalization)
  Sender: FDA-Public Use
  Company Number: 2013MPI00520

PATIENT
  Age: 23 Year
  Sex: Female

DRUGS (4)
  1. ADCETRIS [Suspect]
     Active Substance: BRENTUXIMAB VEDOTIN
     Indication: HODGKIN^S DISEASE
     Route: 042
     Dates: start: 20130805, end: 20130805
  2. CHLORPHENAMINE (CHLORPHENAMINE) [Concomitant]
  3. PARACETAMOL (PARACETAMOL) [Concomitant]
     Active Substance: ACETAMINOPHEN
  4. BISOPROLOL (BISOPROLOL HEMIFUMARATE) [Concomitant]

REACTIONS (3)
  - Pancreatitis acute [None]
  - Pancreatitis necrotising [None]
  - Sepsis [None]

NARRATIVE: CASE EVENT DATE: 20130812
